FAERS Safety Report 10196577 (Version 3)
Quarter: 2014Q3

REPORT INFORMATION
  Report Type: Spontaneous
  Country: US (occurrence: US)
  Receive Date: 20140527
  Receipt Date: 20140829
  Transmission Date: 20150326
  Serious: Yes (Other)
  Sender: FDA-Public Use
  Company Number: US-PFIZER INC-2014144154

PATIENT
  Age: 60 Year
  Sex: Female

DRUGS (8)
  1. CELEBREX [Concomitant]
     Active Substance: CELECOXIB
     Dosage: 200 MG, DAILY
     Route: 048
     Dates: start: 20090127
  2. TEMAZEPAM. [Concomitant]
     Active Substance: TEMAZEPAM
     Dosage: 30 MG, 1X/DAY (HS)
     Dates: start: 20100223, end: 20130312
  3. METFORMIN [Concomitant]
     Active Substance: METFORMIN HYDROCHLORIDE
     Dosage: 500 MG, 1X/DAY (Q AM)
     Route: 048
     Dates: start: 20100405
  4. VITAMIN D3 [Concomitant]
     Active Substance: CHOLECALCIFEROL
     Dosage: 5000 IU, DAILY
     Route: 048
     Dates: start: 20100327
  5. ASPIRIN. [Concomitant]
     Active Substance: ASPIRIN
     Dosage: 325 MG, DAILY
     Route: 048
     Dates: start: 201009
  6. LIPITOR [Suspect]
     Active Substance: ATORVASTATIN CALCIUM
     Indication: HYPERLIPIDAEMIA
     Dosage: 40 MG, 1X/DAY (1 QHS) APP. 1 YR
     Route: 048
     Dates: start: 20090127, end: 20101217
  7. FISH OIL [Concomitant]
     Active Substance: FISH OIL
     Dosage: 1000 MG, 3 DAILY
  8. ACCUPRIL [Concomitant]
     Active Substance: QUINAPRIL HYDROCHLORIDE
     Dosage: 40 MG, DAILY
     Route: 048
     Dates: start: 20090127, end: 20140430

REACTIONS (2)
  - Drug hypersensitivity [Unknown]
  - Liver function test abnormal [Recovered/Resolved]

NARRATIVE: CASE EVENT DATE: 20101217
